FAERS Safety Report 7573176-5 (Version None)
Quarter: 2011Q2

REPORT INFORMATION
  Report Type: 
  Country: None (occurrence: None)
  Receive Date: 20110620
  Receipt Date: 20110608
  Transmission Date: 20111010
  Serious: Yes (Hospitalization, Other)
  Sender: FDA-Public Use
  Company Number: GB-2011-0807

PATIENT
  Age: 74 Year
  Sex: Female
  Weight: 82.9 kg

DRUGS (9)
  1. VINORELBINE [Suspect]
     Indication: BREAST CANCER
     Dosage: 20 MG/M2 IV
     Route: 042
     Dates: start: 20100717
  2. METOCLOPRAMIDE [Concomitant]
  3. NERATINIB [Suspect]
     Indication: BREAST CANCER
     Dosage: 240 MG QD PO
     Route: 048
     Dates: start: 20100429, end: 20100630
  4. CO-TENIDONE [Concomitant]
  5. VINORELBINE [Suspect]
     Indication: BREAST CANCER
     Dosage: 25 MG/M2 IV
     Route: 042
     Dates: start: 20100429, end: 20100630
  6. DIORALYTE [Concomitant]
  7. LOPERAMIDE [Concomitant]
  8. SIMVASTATIN [Concomitant]
  9. NERATINIB [Suspect]
     Indication: BREAST CANCER
     Dosage: 240 MG QD PO
     Route: 048
     Dates: start: 20100716

REACTIONS (10)
  - ANAEMIA [None]
  - DIZZINESS [None]
  - ESCHERICHIA TEST POSITIVE [None]
  - FATIGUE [None]
  - DEHYDRATION [None]
  - ORTHOSTATIC HYPOTENSION [None]
  - URINARY TRACT INFECTION [None]
  - CONSTIPATION [None]
  - WEIGHT DECREASED [None]
  - DIARRHOEA [None]
